FAERS Safety Report 18094470 (Version 1)
Quarter: 2020Q3

REPORT INFORMATION
  Report Type: Spontaneous
  Country: US (occurrence: US)
  Receive Date: 20200730
  Receipt Date: 20200730
  Transmission Date: 20201103
  Serious: No
  Sender: FDA-Public Use
  Company Number: US-DENTSPLY PHARMACEUTICAL-2020SCDP000180

PATIENT

DRUGS (6)
  1. ACETAMINOPHEN. [Suspect]
     Active Substance: ACETAMINOPHEN
     Indication: SPINAL OPERATION
  2. GABAPENTIN. [Suspect]
     Active Substance: GABAPENTIN
     Indication: SPINAL OPERATION
  3. GABAPENTIN. [Suspect]
     Active Substance: GABAPENTIN
     Indication: POSTOPERATIVE ANALGESIA
     Dosage: 600 MILLIGRAM
     Route: 048
  4. ACETAMINOPHEN. [Suspect]
     Active Substance: ACETAMINOPHEN
     Indication: POSTOPERATIVE ANALGESIA
     Dosage: 1000 MILLIGRAM, SINGLE
     Route: 048
  5. KETAMINE [Suspect]
     Active Substance: KETAMINE
     Indication: SPINAL OPERATION
     Dosage: 5 MCG/KG/MIN THROUGHOUT SURGERY
     Route: 042
  6. LIDOCAINE HCL [Suspect]
     Active Substance: LIDOCAINE HYDROCHLORIDE
     Indication: SPINAL OPERATION
     Dosage: 1.5 MG/KG/H
     Route: 042

REACTIONS (1)
  - Drug ineffective [Unknown]
